FAERS Safety Report 8979502 (Version 1)
Quarter: 2012Q4

REPORT INFORMATION
  Report Type: Report from Study
  Country: DE (occurrence: DE)
  Receive Date: 20121221
  Receipt Date: 20121221
  Transmission Date: 20130627
  Serious: Yes (Death, Hospitalization, Other)
  Sender: FDA-Public Use
  Company Number: DE-ABBOTT-12P-062-0957307-00

PATIENT
  Sex: Male

DRUGS (5)
  1. HUMIRA 40 MG/ 0.8 ML PRE-FILLED SYRINGE [Suspect]
     Indication: CROHN^S DISEASE
     Route: 058
     Dates: start: 20110801, end: 20120615
  2. CORTISONE [Concomitant]
     Indication: CROHN^S DISEASE
  3. ANTIHYPERTENSIVE DRUG [Concomitant]
     Indication: HYPERTENSION
  4. DRUG FOR STOMACH PROTECTION [Concomitant]
     Indication: GASTRIC DISORDER
  5. DRUG FOR STOMACH PROTECTION [Concomitant]
     Indication: PROPHYLAXIS

REACTIONS (2)
  - Death [Fatal]
  - Malignant neoplasm of unknown primary site [Not Recovered/Not Resolved]
